FAERS Safety Report 13153373 (Version 1)
Quarter: 2017Q1

REPORT INFORMATION
  Report Type: Spontaneous
  Country: US (occurrence: US)
  Receive Date: 20170120
  Receipt Date: 20170120
  Transmission Date: 20170428
  Serious: Yes (Life-Threatening, Hospitalization, Disabling, Other)
  Sender: FDA-Public Use
  Company Number: None

PATIENT
  Age: 59 Year
  Sex: Female
  Weight: 56.25 kg

DRUGS (7)
  1. HARVONI [Suspect]
     Active Substance: LEDIPASVIR\SOFOSBUVIR
     Indication: HEPATITIS C
     Dosage: ?          QUANTITY:84 TABLET(S);?
     Route: 048
     Dates: start: 20160420, end: 20160712
  2. PAIN MEDICATION [Concomitant]
     Active Substance: UNSPECIFIED INGREDIENT
  3. MULTI VITAMINS [Concomitant]
     Active Substance: VITAMINS
  4. BLOOD PRESSURE MEDICATION [Concomitant]
     Active Substance: UNSPECIFIED INGREDIENT
  5. NACL PILLS [Concomitant]
  6. PRO-BIOTICS [Concomitant]
  7. LAXATIVES [Concomitant]
     Active Substance: UNSPECIFIED INGREDIENT

REACTIONS (4)
  - Weight decreased [None]
  - Vomiting [None]
  - Postural orthostatic tachycardia syndrome [None]
  - Abdominal pain [None]

NARRATIVE: CASE EVENT DATE: 20160819
